FAERS Safety Report 6407970-0 (Version None)
Quarter: 2009Q4

REPORT INFORMATION
  Report Type: 
  Country: None (occurrence: None)
  Receive Date: 20091016
  Receipt Date: 20091006
  Transmission Date: 20100525
  Serious: No
  Sender: FDA-Public Use
  Company Number: 233528K09USA

PATIENT
  Age: 52 Year
  Sex: Female

DRUGS (1)
  1. REBIF [Suspect]
     Indication: MULTIPLE SCLEROSIS
     Dosage: 44 MCG, 3 IN 1 WEEKS, SUBCUTANEOUS
     Route: 058
     Dates: start: 20040127

REACTIONS (5)
  - BLOOD GLUCOSE ABNORMAL [None]
  - EATING DISORDER [None]
  - FATIGUE [None]
  - INJECTION SITE DISCOLOURATION [None]
  - VISUAL ACUITY REDUCED [None]
